FAERS Safety Report 5150614-9 (Version None)
Quarter: 2006Q4

REPORT INFORMATION
  Report Type: 
  Country: None (occurrence: None)
  Receive Date: 20061114
  Receipt Date: 20061106
  Transmission Date: 20070319
  Serious: Yes (Other)
  Sender: FDA-Public Use
  Company Number: 2006AP05335

PATIENT
  Age: 64 Year
  Sex: Male

DRUGS (13)
  1. DIPRIVAN [Suspect]
     Indication: INDUCTION AND MAINTENANCE OF ANAESTHESIA
     Route: 042
     Dates: start: 20061025, end: 20061025
  2. KETAMINE HCL [Suspect]
     Dates: start: 20061025, end: 20061025
  3. ALTAT [Concomitant]
     Dates: start: 20061025, end: 20061025
  4. RHYTHMY [Concomitant]
     Route: 048
     Dates: start: 20061025, end: 20061025
  5. FENTANYL CITRATE [Concomitant]
     Dates: start: 20061025, end: 20061025
  6. MUSCULAX [Concomitant]
     Dates: start: 20061025, end: 20061025
  7. MARCAINE [Concomitant]
     Dates: start: 20061025, end: 20061025
  8. HALOSPOR [Concomitant]
     Dates: start: 20061025, end: 20061025
  9. DECADRON [Concomitant]
     Dates: start: 20061025, end: 20061025
  10. LEPETAN [Concomitant]
     Dates: start: 20061025, end: 20061025
  11. VOLTAREN [Concomitant]
     Dates: start: 20061025, end: 20061025
  12. VEEN-F [Concomitant]
     Dates: start: 20061025, end: 20061025
  13. SEISHOKU [Concomitant]
     Dates: start: 20061025, end: 20061025

REACTIONS (3)
  - ALANINE AMINOTRANSFERASE INCREASED [None]
  - ASPARTATE AMINOTRANSFERASE INCREASED [None]
  - HEPATIC FUNCTION ABNORMAL [None]
